FAERS Safety Report 13247603 (Version 1)
Quarter: 2017Q1

REPORT INFORMATION
  Report Type: Spontaneous
  Country: US (occurrence: US)
  Receive Date: 20170217
  Receipt Date: 20170217
  Transmission Date: 20170428
  Serious: No
  Sender: FDA-Public Use
  Company Number: US-PFIZER INC-2017062495

PATIENT
  Sex: Female

DRUGS (1)
  1. CORTISONE ACETATE. [Suspect]
     Active Substance: CORTISONE ACETATE
     Indication: TRIGGER FINGER
     Dosage: 2 DF, UNK

REACTIONS (1)
  - Drug ineffective for unapproved indication [Unknown]
